FAERS Safety Report 8997315 (Version 1)
Quarter: 2013Q1

REPORT INFORMATION
  Report Type: Spontaneous
  Country: US (occurrence: US)
  Receive Date: 20130104
  Receipt Date: 20130104
  Transmission Date: 20140127
  Serious: No
  Sender: FDA-Public Use
  Company Number: US-009507513-1301USA000534

PATIENT
  Age: 32 Year
  Sex: Female

DRUGS (5)
  1. MIRTAZAPINE [Suspect]
     Indication: DEPRESSION
     Dosage: UNK
  2. VENLAFAXINE HYDROCHLORIDE [Concomitant]
     Dosage: UNK
  3. ESCITALOPRAM [Concomitant]
     Dosage: UNK
  4. BUPROPION HYDROCHLORIDE [Concomitant]
     Dosage: UNK
  5. CLONAZEPAM [Concomitant]
     Dosage: UNK

REACTIONS (1)
  - Drug ineffective [Unknown]
